FAERS Safety Report 23186014 (Version 1)
Quarter: 2023Q4

REPORT INFORMATION
  Report Type: Spontaneous
  Country: US (occurrence: US)
  Receive Date: 20231115
  Receipt Date: 20231115
  Transmission Date: 20240109
  Serious: Yes (Other)
  Sender: FDA-Public Use
  Company Number: US-MYLANLABS-2023M1121787

PATIENT
  Age: 54 Year
  Sex: Male

DRUGS (1)
  1. GABAPENTIN [Suspect]
     Active Substance: GABAPENTIN
     Indication: Product used for unknown indication
     Dosage: UNK
     Route: 065

REACTIONS (9)
  - Arnold-Chiari malformation [Unknown]
  - Stiff person syndrome [Unknown]
  - Syringomyelia [Unknown]
  - Dystonia [Unknown]
  - Raynaud^s phenomenon [Unknown]
  - Ehlers-Danlos syndrome [Unknown]
  - Gait disturbance [Unknown]
  - COVID-19 [Unknown]
  - Pain [Unknown]

NARRATIVE: CASE EVENT DATE: 20230101
